FAERS Safety Report 18000123 (Version 2)
Quarter: 2020Q3

REPORT INFORMATION
  Report Type: Report from Study
  Country: US (occurrence: US)
  Receive Date: 20200709
  Receipt Date: 20200901
  Transmission Date: 20201103
  Serious: Yes (Other)
  Sender: FDA-Public Use
  Company Number: US-UCBSA-2020026638

PATIENT
  Sex: Male

DRUGS (1)
  1. LACOSAMIDE. [Suspect]
     Active Substance: LACOSAMIDE
     Indication: SEIZURE
     Dosage: 100 MG 1 TABLET IN MORNING AND 1.5 TABLET AT NIGHT 2X/DAY (BID)

REACTIONS (5)
  - Vascular injury [Unknown]
  - Intentional product misuse [Unknown]
  - Cerebral disorder [Unknown]
  - Cerebrovascular accident [Unknown]
  - Unevaluable event [Not Recovered/Not Resolved]

NARRATIVE: CASE EVENT DATE: 2020
